FAERS Safety Report 9818173 (Version 2)
Quarter: 2014Q2

REPORT INFORMATION
  Report Type: Spontaneous
  Country: FR (occurrence: FR)
  Receive Date: 20140115
  Receipt Date: 20140415
  Transmission Date: 20141212
  Serious: Yes (Hospitalization)
  Sender: FDA-Public Use
  Company Number: FR-ASTRAZENECA-2014SE01550

PATIENT
  Age: 50 Year
  Sex: Female

DRUGS (14)
  1. ESOMEPRAZOLE [Suspect]
     Route: 048
     Dates: start: 20130809, end: 201309
  2. CRESTOR [Suspect]
     Route: 048
     Dates: start: 20130821, end: 201309
  3. SEROPLEX [Suspect]
     Route: 048
     Dates: end: 201309
  4. PRIMPERAN [Suspect]
     Route: 048
     Dates: end: 201309
  5. LYRICA [Suspect]
     Route: 048
     Dates: end: 201309
  6. OXYNORM [Suspect]
     Route: 048
     Dates: start: 20130821, end: 201309
  7. KARDEGIC [Concomitant]
  8. PLAVIX [Concomitant]
  9. LOVENOX [Concomitant]
  10. METOPROLOL [Concomitant]
  11. INSULINE [Concomitant]
  12. HEXASPRAY [Concomitant]
  13. HYDROXYZINE [Concomitant]
  14. SOLUMEDROL [Concomitant]

REACTIONS (3)
  - Toxic skin eruption [Recovered/Resolved]
  - Stevens-Johnson syndrome [Recovered/Resolved]
  - Erythema multiforme [Recovered/Resolved]
